FAERS Safety Report 10906514 (Version 2)
Quarter: 2015Q1

REPORT INFORMATION
  Report Type: Report from Study
  Country: US (occurrence: US)
  Receive Date: 20150312
  Receipt Date: 20150316
  Transmission Date: 20150721
  Serious: Yes (Other)
  Sender: FDA-Public Use
  Company Number: US-ABBVIE-15K-163-1357420-00

PATIENT
  Age: 26 Year
  Sex: Female

DRUGS (1)
  1. HUMIRA [Suspect]
     Active Substance: ADALIMUMAB
     Indication: COLITIS ULCERATIVE
     Route: 065
     Dates: start: 20141107

REACTIONS (5)
  - Infected cyst [Unknown]
  - Cyst [Unknown]
  - Colitis ulcerative [Recovering/Resolving]
  - Infected cyst [Unknown]
  - Cyst [Unknown]

NARRATIVE: CASE EVENT DATE: 20150114
